FAERS Safety Report 15534698 (Version 1)
Quarter: 2018Q4

REPORT INFORMATION
  Report Type: Report from Study
  Country: CA (occurrence: CA)
  Receive Date: 20181022
  Receipt Date: 20181022
  Transmission Date: 20190205
  Serious: Yes (Hospitalization)
  Sender: FDA-Public Use
  Company Number: CA-IPSEN BIOPHARMACEUTICALS, INC.-2018-11228

PATIENT
  Sex: Male
  Weight: 66.67 kg

DRUGS (1)
  1. SOMATULINE AUTOGEL 120MG [Suspect]
     Active Substance: LANREOTIDE ACETATE
     Indication: NEUROENDOCRINE TUMOUR
     Dosage: 120 MG
     Route: 058
     Dates: start: 20151221

REACTIONS (5)
  - Pain [Recovering/Resolving]
  - Fatigue [Unknown]
  - Yellow skin [Recovering/Resolving]
  - Peripheral coldness [Unknown]
  - Oesophageal haemorrhage [Unknown]

NARRATIVE: CASE EVENT DATE: 2018
